FAERS Safety Report 15182866 (Version 2)
Quarter: 2018Q3

REPORT INFORMATION
  Report Type: Spontaneous
  Country: CN (occurrence: CN)
  Receive Date: 20180723
  Receipt Date: 20180731
  Transmission Date: 20181010
  Serious: Yes (Death, Other)
  Sender: FDA-Public Use
  Company Number: CN-JNJFOC-20180726168

PATIENT
  Age: 70 Year
  Sex: Male

DRUGS (1)
  1. XARELTO [Suspect]
     Active Substance: RIVAROXABAN
     Indication: PRODUCT USED FOR UNKNOWN INDICATION
     Route: 048
     Dates: start: 20180527, end: 20180716

REACTIONS (7)
  - Haemoptysis [Fatal]
  - Aortic thrombosis [Unknown]
  - Pneumonitis [Unknown]
  - Polycystic liver disease [Unknown]
  - Bronchitis [Unknown]
  - Aortic aneurysm [Unknown]
  - Lung infection [Unknown]

NARRATIVE: CASE EVENT DATE: 20180713
